FAERS Safety Report 6282279-7 (Version None)
Quarter: 2009Q3

REPORT INFORMATION
  Report Type: 
  Country: None (occurrence: None)
  Receive Date: 20090724
  Receipt Date: 20090714
  Transmission Date: 20100115
  Serious: Yes (Other)
  Sender: FDA-Public Use
  Company Number: GB-CELGENEUS-167-20785-09070893

PATIENT

DRUGS (2)
  1. THALIDOMIDE [Suspect]
     Indication: DRUG USE FOR UNKNOWN INDICATION
     Route: 048
  2. THALIDOMIDE [Suspect]
     Route: 048
     Dates: start: 20090401

REACTIONS (1)
  - OPHTHALMOPLEGIA [None]
